FAERS Safety Report 24929151 (Version 1)
Quarter: 2025Q1

REPORT INFORMATION
  Report Type: Spontaneous
  Country: US (occurrence: None)
  Receive Date: 20250205
  Receipt Date: 20250205
  Transmission Date: 20250409
  Serious: Yes (Other)
  Sender: FDA-CTU
  Company Number: None

PATIENT
  Age: 28 Year
  Sex: Female

DRUGS (1)
  1. LUPRON DEPOT [Suspect]
     Active Substance: LEUPROLIDE ACETATE
     Dates: start: 20240809, end: 20250205

REACTIONS (5)
  - Abdominal pain upper [None]
  - Nausea [None]
  - Hot flush [None]
  - Night sweats [None]
  - Anxiety [None]

NARRATIVE: CASE EVENT DATE: 20250205
